FAERS Safety Report 7315290-5 (Version None)
Quarter: 2011Q1

REPORT INFORMATION
  Report Type: 
  Country: None (occurrence: None)
  Receive Date: 20110225
  Receipt Date: 20110215
  Transmission Date: 20110831
  Serious: Yes (Hospitalization)
  Sender: FDA-Public Use
  Company Number: PHHO2011GB03091

PATIENT
  Age: 87 Year
  Sex: Male

DRUGS (5)
  1. DICLOFENAC [Suspect]
     Indication: OSTEOARTHRITIS
     Dosage: 25 MG, TID
     Route: 048
     Dates: start: 20080708, end: 20080911
  2. IBUPROFEN [Concomitant]
  3. NAPROXEN [Concomitant]
  4. DICLOFENAC [Suspect]
     Dosage: NO TREATMENT
     Dates: start: 20080912, end: 20090528
  5. DICLOFENAC [Suspect]
     Dosage: 25 MG, TID
     Route: 048
     Dates: start: 20090529, end: 20100113

REACTIONS (4)
  - LUNG NEOPLASM [None]
  - PULMONARY EMBOLISM [None]
  - DYSPNOEA [None]
  - PRESYNCOPE [None]
